FAERS Safety Report 5071831-2 (Version None)
Quarter: 2006Q3

REPORT INFORMATION
  Report Type: 
  Country: None (occurrence: None)
  Receive Date: 20060801
  Receipt Date: 20060728
  Transmission Date: 20061208
  Serious: Yes (Other)
  Sender: FDA-Public Use
  Company Number: 200610340BFR

PATIENT
  Age: 75 Year
  Sex: Male
  Weight: 77 kg

DRUGS (1)
  1. CIPROFLOXACIN [Suspect]
     Indication: SERRATIA INFECTION
     Dosage: ORAL
     Route: 048
     Dates: start: 20060129, end: 20060201

REACTIONS (5)
  - ERYTHEMA [None]
  - PAIN IN EXTREMITY [None]
  - PRURITUS [None]
  - SKIN ULCER [None]
  - TENDON DISORDER [None]
